FAERS Safety Report 6113186-8 (Version None)
Quarter: 2009Q1

REPORT INFORMATION
  Report Type: 
  Country: None (occurrence: None)
  Receive Date: 20090312
  Receipt Date: 20090302
  Transmission Date: 20090719
  Serious: Yes (Other)
  Sender: FDA-Public Use
  Company Number: US-PFIZER INC-2009172345

PATIENT
  Sex: Female
  Weight: 58 kg

DRUGS (1)
  1. AROMASIN [Suspect]
     Indication: BREAST CANCER
     Dosage: DAILY
     Dates: start: 20090201, end: 20090213

REACTIONS (2)
  - LYMPHADENOPATHY [None]
  - VIRAL INFECTION [None]
